FAERS Safety Report 6065661-2 (Version None)
Quarter: 2009Q1

REPORT INFORMATION
  Report Type: 
  Country: None (occurrence: None)
  Receive Date: 20090130
  Receipt Date: 20090123
  Transmission Date: 20090719
  Serious: Yes (Other)
  Sender: FDA-Public Use
  Company Number: 156552

PATIENT
  Age: 62 Year
  Sex: Female
  Weight: 67.2 kg

DRUGS (1)
  1. PACLITAXEL [Suspect]
     Indication: BREAST CANCER
     Dosage: 312 MG, INTRAVENOUS
     Route: 042
     Dates: start: 20090119, end: 20090119

REACTIONS (4)
  - BACK PAIN [None]
  - CHEST DISCOMFORT [None]
  - FLUSHING [None]
  - INFUSION RELATED REACTION [None]
